FAERS Safety Report 20074880 (Version 1)
Quarter: 2021Q4

REPORT INFORMATION
  Report Type: Spontaneous
  Country: US (occurrence: US)
  Receive Date: 20211116
  Receipt Date: 20211116
  Transmission Date: 20220304
  Serious: No
  Sender: FDA-Public Use
  Company Number: US-SA-SAC20211109000089

PATIENT
  Age: 58 Year
  Sex: Female

DRUGS (5)
  1. DUPIXENT [Suspect]
     Active Substance: DUPILUMAB
     Indication: Dermatitis atopic
     Dosage: 300 MG, QOW
     Route: 058
     Dates: start: 20210115
  2. TALTZ [Concomitant]
     Active Substance: IXEKIZUMAB
  3. PREDNISONE [Concomitant]
     Active Substance: PREDNISONE
  4. BUPRENORPHINE [Concomitant]
     Active Substance: BUPRENORPHINE
  5. DIS [Concomitant]

REACTIONS (3)
  - Urinary tract infection [Unknown]
  - Injection site reaction [Unknown]
  - Dermatitis atopic [Unknown]

NARRATIVE: CASE EVENT DATE: 20210101
